FAERS Safety Report 7794921-X (Version None)
Quarter: 2011Q4

REPORT INFORMATION
  Report Type: 
  Country: None (occurrence: None)
  Receive Date: 20111004
  Receipt Date: 20110922
  Transmission Date: 20120403
  Serious: Yes (Other)
  Sender: FDA-Public Use
  Company Number: BR-PFIZER INC-2011226714

PATIENT
  Age: 78 Year
  Sex: Male

DRUGS (2)
  1. CLINDAMYCIN [Concomitant]
     Indication: DIABETES MELLITUS
     Dosage: UNK
  2. PRISTIQ [Suspect]
     Indication: DEPRESSION
     Dosage: 50 MG, DAILY
     Route: 048
     Dates: start: 20110915

REACTIONS (2)
  - DRUG EFFECT DECREASED [None]
  - NEPHROLITHIASIS [None]
